FAERS Safety Report 5338389-1 (Version None)
Quarter: 2007Q2

REPORT INFORMATION
  Report Type: 
  Country: None (occurrence: None)
  Receive Date: 20070405
  Receipt Date: 20061114
  Transmission Date: 20071010
  Serious: No
  Sender: FDA-Public Use
  Company Number: US200611002729

PATIENT
  Age: 46 Year
  Sex: Male

DRUGS (2)
  1. CYMBALTA [Suspect]
     Indication: ANXIETY
     Dosage: 30 MG
     Dates: start: 20061106
  2. ATIVAN [Concomitant]

REACTIONS (9)
  - DISTURBANCE IN ATTENTION [None]
  - DRY MOUTH [None]
  - ERYTHEMA [None]
  - EXPRESSIVE LANGUAGE DISORDER [None]
  - FEELING ABNORMAL [None]
  - FLUSHING [None]
  - LETHARGY [None]
  - NERVOUSNESS [None]
  - VISION BLURRED [None]
